FAERS Safety Report 6241214-8 (Version None)
Quarter: 2009Q2

REPORT INFORMATION
  Report Type: 
  Country: None (occurrence: None)
  Receive Date: 20090619
  Receipt Date: 20090619
  Transmission Date: 20091009
  Serious: Yes (Other)
  Sender: FDA-Public Use
  Company Number: None

PATIENT
  Age: 76 Year
  Sex: Male
  Weight: 57.1532 kg

DRUGS (1)
  1. ULTRA K2  15 MG COMPLEMENTARY PRESCRIPTIONS [Suspect]
     Indication: OSTEOPOROSIS
     Dosage: 15 MG  ONCE A DAY
     Dates: start: 20090101, end: 20090329

REACTIONS (4)
  - DRY EYE [None]
  - EYE PAIN [None]
  - INSOMNIA [None]
  - MENIERE'S DISEASE [None]
